FAERS Safety Report 23918635 (Version 2)
Quarter: 2024Q3

REPORT INFORMATION
  Report Type: Spontaneous
  Country: RU (occurrence: RU)
  Receive Date: 20240530
  Receipt Date: 20240828
  Transmission Date: 20241016
  Serious: Yes (Other)
  Sender: BRISTOL MYERS SQUIBB
  Company Number: RU-BRISTOL-MYERS SQUIBB COMPANY-2024-083056

PATIENT
  Age: 58 Year
  Sex: Female

DRUGS (5)
  1. OPDIVO [Suspect]
     Active Substance: NIVOLUMAB
     Indication: Lung adenocarcinoma
     Dosage: 1ST AND 22ND DAYS
     Route: 041
     Dates: start: 20210616
  2. IPILIMUMAB [Suspect]
     Active Substance: IPILIMUMAB
     Indication: Lung adenocarcinoma
     Dosage: 1ST DAY
     Dates: start: 20210616
  3. CARBOPLATIN [Suspect]
     Active Substance: CARBOPLATIN
     Indication: Lung adenocarcinoma
     Dosage: 5-6 AUC 1ST AND 22ND DAYS.
     Dates: start: 20210616
  4. PEMETREXED DISODIUM [Suspect]
     Active Substance: PEMETREXED DISODIUM
     Indication: Lung adenocarcinoma
     Dosage: 1ST AND 22ND DAYS.
     Route: 042
     Dates: start: 20210616
  5. PREDNISONE [Concomitant]
     Active Substance: PREDNISONE

REACTIONS (15)
  - Sinusitis [Unknown]
  - Metastases to pleura [Unknown]
  - Cough [Recovered/Resolved]
  - Pneumonitis [Unknown]
  - Meningioma [Unknown]
  - Metastases to lymph nodes [Unknown]
  - Metastases to adrenals [Unknown]
  - Headache [Recovering/Resolving]
  - Dizziness [Recovered/Resolved]
  - Haemoptysis [Recovered/Resolved]
  - Metastases to central nervous system [Unknown]
  - Tumour pseudoprogression [Unknown]
  - Oxygen saturation decreased [Recovering/Resolving]
  - Lymphangiosis carcinomatosa [Unknown]
  - Otitis media [Unknown]

NARRATIVE: CASE EVENT DATE: 20210716
